FAERS Safety Report 4866997-0 (Version None)
Quarter: 2005Q4

REPORT INFORMATION
  Report Type: 
  Country: None (occurrence: None)
  Receive Date: 20051227
  Receipt Date: 20050804
  Transmission Date: 20060501
  Serious: Yes (Hospitalization, Other)
  Sender: FDA-Public Use
  Company Number: JP-MERCK-0508USA01565

PATIENT
  Age: 81 Year
  Sex: Female
  Weight: 67 kg

DRUGS (7)
  1. ZOCOR [Suspect]
     Indication: HYPERLIPIDAEMIA
     Route: 048
     Dates: end: 20050712
  2. TANATRIL [Suspect]
     Indication: HYPERTENSION
     Route: 048
     Dates: end: 20050712
  3. ANISTADIN [Concomitant]
     Indication: HYPERTENSION
     Route: 048
     Dates: end: 20050712
  4. DEPAS [Concomitant]
     Indication: ANXIETY DISORDER
     Route: 048
     Dates: end: 20050712
  5. OXAPROZIN [Concomitant]
     Indication: OSTEOARTHRITIS
     Route: 048
     Dates: end: 20050712
  6. SEVEN E-P [Concomitant]
     Indication: DYSPEPSIA
     Route: 048
     Dates: end: 20050712
  7. [THERAPY UNSPECIFIED] [Concomitant]
     Indication: GASTRITIS
     Route: 048
     Dates: end: 20050712

REACTIONS (5)
  - BLOOD CREATINE PHOSPHOKINASE INCREASED [None]
  - BRONCHITIS ACUTE [None]
  - GASTROENTERITIS [None]
  - PLATELET COUNT DECREASED [None]
  - RENAL IMPAIRMENT [None]
